FAERS Safety Report 14066121 (Version 2)
Quarter: 2017Q4

REPORT INFORMATION
  Report Type: Report from Study
  Country: None (occurrence: AR)
  Receive Date: 20171009
  Receipt Date: 20171010
  Transmission Date: 20180321
  Serious: Yes (Other)
  Sender: FDA-Public Use
  Company Number: AR-ABBVIE-17S-007-2124957-00

PATIENT
  Age: 26 Year
  Sex: Female

DRUGS (1)
  1. ZEMPLAR [Suspect]
     Active Substance: PARICALCITOL
     Indication: HYPERPARATHYROIDISM SECONDARY
     Route: 042
     Dates: start: 20120401

REACTIONS (3)
  - Lower limb fracture [Not Recovered/Not Resolved]
  - Ligament rupture [Unknown]
  - Fall [Unknown]

NARRATIVE: CASE EVENT DATE: 201709
